FAERS Safety Report 7219735-0 (Version None)
Quarter: 2011Q1

REPORT INFORMATION
  Report Type: 
  Country: None (occurrence: None)
  Receive Date: 20110111
  Receipt Date: 20110104
  Transmission Date: 20110831
  Serious: Yes (Hospitalization, Other)
  Sender: FDA-Public Use
  Company Number: US-US-EMD SERONO, INC.-232741J08USA

PATIENT
  Sex: Female
  Weight: 59 kg

DRUGS (21)
  1. REBIF [Suspect]
     Route: 058
     Dates: start: 20080501, end: 20091201
  2. AMANTADINE [Concomitant]
     Indication: FATIGUE
  3. FIBER CHOICE [Concomitant]
     Indication: CONSTIPATION
  4. LYRICA [Concomitant]
     Indication: PAIN
  5. FOSAMAX [Concomitant]
     Indication: BONE DISORDER
  6. LOPRESSOR [Concomitant]
     Indication: HYPERTENSION
  7. TEGRETOL [Concomitant]
     Indication: BURNING SENSATION
  8. BUSPAR [Concomitant]
     Indication: MULTIPLE SCLEROSIS
  9. MOBIC [Concomitant]
     Indication: PAIN
  10. TOPAMAX [Concomitant]
     Indication: HEADACHE
  11. ZANAFLEX [Concomitant]
     Indication: MUSCLE SPASTICITY
  12. BACLOFEN [Concomitant]
     Indication: MULTIPLE SCLEROSIS
  13. CYMBALTA [Concomitant]
     Indication: PAIN
  14. FERROUS SULFATE [Concomitant]
     Indication: ANAEMIA
  15. METHADONE [Concomitant]
     Indication: PAIN
  16. DETROL LA [Concomitant]
     Indication: POLLAKIURIA
  17. REBIF [Suspect]
     Indication: MULTIPLE SCLEROSIS
     Route: 058
     Dates: start: 20040101, end: 20080324
  18. CARAFATE [Concomitant]
     Indication: GASTROOESOPHAGEAL REFLUX DISEASE
  19. PRILOSEC [Concomitant]
     Indication: GASTROOESOPHAGEAL REFLUX DISEASE
  20. PROVIGIL [Concomitant]
     Indication: FATIGUE
  21. CLARITIN [Concomitant]
     Indication: SINUS DISORDER

REACTIONS (8)
  - DRUG HYPERSENSITIVITY [None]
  - MYOSITIS [None]
  - FAT NECROSIS [None]
  - INJECTION SITE REACTION [None]
  - BALANCE DISORDER [None]
  - ABDOMINAL WALL ABSCESS [None]
  - CELLULITIS [None]
  - PARALYSIS [None]
